FAERS Safety Report 16483357 (Version 1)
Quarter: 2019Q2

REPORT INFORMATION
  Report Type: Spontaneous
  Country: US (occurrence: US)
  Receive Date: 20190627
  Receipt Date: 20190627
  Transmission Date: 20190711
  Serious: No
  Sender: FDA-Public Use
  Company Number: US-GLAXOSMITHKLINE-US2019114101

PATIENT
  Sex: Female

DRUGS (1)
  1. VENTOLIN HFA [Suspect]
     Active Substance: ALBUTEROL SULFATE
     Indication: NASOPHARYNGITIS
     Dosage: 2 PUFF(S), PRN
     Route: 065

REACTIONS (3)
  - Expired product administered [Unknown]
  - Product use in unapproved indication [Unknown]
  - Wrong technique in device usage process [Unknown]
